FAERS Safety Report 10774557 (Version 2)
Quarter: 2016Q1

REPORT INFORMATION
  Report Type: Spontaneous
  Country: US (occurrence: US)
  Receive Date: 20150209
  Receipt Date: 20160219
  Transmission Date: 20160525
  Serious: No
  Sender: FDA-Public Use
  Company Number: US-ACORDA-ACO_108349_2015

PATIENT
  Age: 50 Year
  Sex: Female
  Weight: 55.78 kg

DRUGS (4)
  1. AMPYRA [Suspect]
     Active Substance: DALFAMPRIDINE
     Dosage: 10 MG, QD
     Route: 048
  2. COPAXONE [Concomitant]
     Active Substance: GLATIRAMER ACETATE
     Indication: PRODUCT USED FOR UNKNOWN INDICATION
     Dosage: UNK
     Route: 065
  3. AMPYRA [Suspect]
     Active Substance: DALFAMPRIDINE
     Dosage: 10 MG, BID
     Route: 048
  4. AMPYRA [Suspect]
     Active Substance: DALFAMPRIDINE
     Indication: GAIT DISTURBANCE
     Dosage: 10 MG, BID
     Route: 048
     Dates: start: 20141226

REACTIONS (10)
  - Muscle spasticity [Recovered/Resolved]
  - Insomnia [Not Recovered/Not Resolved]
  - Pruritus generalised [Recovered/Resolved]
  - Gait disturbance [Unknown]
  - Adverse drug reaction [Unknown]
  - Back pain [Recovered/Resolved]
  - Dizziness [Recovered/Resolved]
  - Mobility decreased [Unknown]
  - Dysstasia [Unknown]
  - Inappropriate schedule of drug administration [Recovered/Resolved]

NARRATIVE: CASE EVENT DATE: 20141226
